FAERS Safety Report 17539148 (Version 4)
Quarter: 2020Q2

REPORT INFORMATION
  Report Type: Spontaneous
  Country: US (occurrence: US)
  Receive Date: 20200313
  Receipt Date: 20200414
  Transmission Date: 20200713
  Serious: Yes (Other)
  Sender: FDA-Public Use
  Company Number: US-PFIZER INC-2020106909

PATIENT
  Age: 17 Year
  Sex: Female
  Weight: 138.32 kg

DRUGS (3)
  1. DILANTIN [Suspect]
     Active Substance: PHENYTOIN
     Indication: EPILEPSY
     Dosage: 3 A DAY
  2. DILANTIN [Suspect]
     Active Substance: PHENYTOIN
     Indication: SEIZURE
     Dosage: 100 MG, 5X/DAY
     Route: 048
  3. PHENOBARBITAL. [Concomitant]
     Active Substance: PHENOBARBITAL
     Indication: EPILEPSY
     Dosage: 64.8 MG, 2X/DAY (64.8MG TABLETS BY MOUTH TWO A DAY, ONE IN THE MORNING AND ONE AT NIGHT)
     Route: 048

REACTIONS (1)
  - Drug ineffective [Unknown]
